FAERS Safety Report 7529286-1 (Version None)
Quarter: 2011Q2

REPORT INFORMATION
  Report Type: 
  Country: None (occurrence: None)
  Receive Date: 20110607
  Receipt Date: 20110527
  Transmission Date: 20111010
  Serious: Yes (Death, Life-Threatening, Hospitalization)
  Sender: FDA-Public Use
  Company Number: US-SANOFI-AVENTIS-2011SA034066

PATIENT
  Age: 72 Year
  Sex: Male
  Weight: 84.6 kg

DRUGS (7)
  1. DOCETAXEL [Suspect]
     Indication: NON-SMALL CELL LUNG CANCER
     Route: 041
     Dates: start: 20060113, end: 20060113
  2. CETUXIMAB [Suspect]
     Route: 042
     Dates: start: 20060210, end: 20060210
  3. MULTI-VITAMINS [Concomitant]
     Route: 065
     Dates: start: 20060214, end: 20060228
  4. CILOSTAZOL [Concomitant]
     Route: 048
  5. NAPROSYN [Concomitant]
     Route: 048
  6. CETUXIMAB [Suspect]
     Indication: NON-SMALL CELL LUNG CANCER
     Route: 042
     Dates: start: 20060113
  7. DOCETAXEL [Suspect]
     Route: 041
     Dates: start: 20060203, end: 20060203

REACTIONS (4)
  - PNEUMONIA ASPIRATION [None]
  - PNEUMONIA [None]
  - ACUTE RESPIRATORY DISTRESS SYNDROME [None]
  - DEEP VEIN THROMBOSIS [None]
